FAERS Safety Report 7583473-5 (Version None)
Quarter: 2011Q2

REPORT INFORMATION
  Report Type: 
  Country: None (occurrence: None)
  Receive Date: 20110630
  Receipt Date: 20110622
  Transmission Date: 20111010
  Serious: Yes (Hospitalization)
  Sender: FDA-Public Use
  Company Number: JP-ROCHE-743043

PATIENT
  Sex: Male
  Weight: 65 kg

DRUGS (3)
  1. AVASTIN [Suspect]
     Indication: LUNG ADENOCARCINOMA METASTATIC
     Route: 041
     Dates: start: 20100106, end: 20101027
  2. PACLITAXEL [Concomitant]
     Route: 041
     Dates: start: 20100106, end: 20100609
  3. CARBOPLATIN [Concomitant]
     Route: 041
     Dates: start: 20100106, end: 20100609

REACTIONS (3)
  - BULLOUS LUNG DISEASE [None]
  - ATELECTASIS [None]
  - PNEUMOTHORAX [None]
